FAERS Safety Report 13012779 (Version 1)
Quarter: 2016Q4

REPORT INFORMATION
  Report Type: Spontaneous
  Country: FR (occurrence: FR)
  Receive Date: 20161209
  Receipt Date: 20161209
  Transmission Date: 20170207
  Serious: Yes (Other)
  Sender: FDA-Public Use
  Company Number: FR-BIOVITRUM-2016FR1030

PATIENT
  Sex: Male

DRUGS (2)
  1. KINERET [Suspect]
     Active Substance: ANAKINRA
     Indication: X-LINKED LYMPHOPROLIFERATIVE SYNDROME
  2. CYCLIN (CLARITHROMYCIN) [Suspect]
     Active Substance: CLARITHROMYCIN

REACTIONS (2)
  - Colitis [Unknown]
  - Arthralgia [Unknown]
